FAERS Safety Report 7463937-5 (Version None)
Quarter: 2011Q2

REPORT INFORMATION
  Report Type: 
  Country: None (occurrence: None)
  Receive Date: 20110506
  Receipt Date: 20110429
  Transmission Date: 20111010
  Serious: Yes (Other)
  Sender: FDA-Public Use
  Company Number: ES-WATSON-2011-05934

PATIENT
  Sex: Male

DRUGS (1)
  1. TRELSTAR [Suspect]
     Indication: PROSTATE CANCER
     Dosage: UNK
     Route: 030
     Dates: start: 20110101

REACTIONS (2)
  - OSTEONECROSIS [None]
  - ARTHRALGIA [None]
